FAERS Safety Report 9745772 (Version 1)
Quarter: 2013Q4

REPORT INFORMATION
  Report Type: Spontaneous
  Country: US (occurrence: US)
  Receive Date: 20131211
  Receipt Date: 20131211
  Transmission Date: 20140711
  Serious: No
  Sender: FDA-Public Use
  Company Number: 2013SP003547

PATIENT
  Sex: Male

DRUGS (1)
  1. LATUDA [Suspect]
     Route: 048

REACTIONS (5)
  - Eye swelling [Unknown]
  - Dry skin [Unknown]
  - Rash [Unknown]
  - Pain [Unknown]
  - Eye pruritus [Unknown]
